FAERS Safety Report 9833971 (Version 1)
Quarter: 2014Q1

REPORT INFORMATION
  Report Type: Other
  Country: IN (occurrence: IN)
  Receive Date: 20140122
  Receipt Date: 20140122
  Transmission Date: 20141002
  Serious: Yes (Other)
  Sender: FDA-Public Use
  Company Number: IN-BRISTOL-MYERS SQUIBB COMPANY-20039129

PATIENT
  Age: 24 Year
  Sex: Female

DRUGS (6)
  1. METFORMIN HCL [Suspect]
  2. CLOMIPHENE CITRATE [Suspect]
     Indication: OVULATION INDUCTION
  3. PROGESTERONE [Suspect]
     Dosage: MICRONISED
     Route: 030
  4. PREDNISOLONE [Suspect]
     Dosage: 5+1.25 MG,6.25+1.25 MG,7.50+0 MG,7.50+1.25 MG
  5. FOLIC ACID [Concomitant]
  6. CALCIUM [Concomitant]

REACTIONS (3)
  - Premature rupture of membranes [Unknown]
  - Abortion threatened [Unknown]
  - Pregnancy [Recovered/Resolved]
